FAERS Safety Report 12664335 (Version 1)
Quarter: 2016Q3

REPORT INFORMATION
  Report Type: Spontaneous
  Country: US (occurrence: US)
  Receive Date: 20160818
  Receipt Date: 20160818
  Transmission Date: 20161109
  Serious: No
  Sender: FDA-Public Use
  Company Number: ALCN2016US005760

PATIENT
  Age: 74 Year
  Sex: Female

DRUGS (1)
  1. SYSTANE LUBRICANT [Suspect]
     Active Substance: POLYETHYLENE GLYCOL 400\PROPYLENE GLYCOL
     Indication: DRY EYE
     Dosage: 1 GTT, ONCE/SINGLE
     Route: 047
     Dates: start: 20160815, end: 20160815

REACTIONS (3)
  - Eye pain [Recovered/Resolved]
  - Headache [Recovered/Resolved]
  - Eye irritation [Unknown]

NARRATIVE: CASE EVENT DATE: 20160815
